FAERS Safety Report 5798520-0 (Version None)
Quarter: 2008Q2

REPORT INFORMATION
  Report Type: 
  Country: None (occurrence: None)
  Receive Date: 20080601
  Receipt Date: 20080120
  Transmission Date: 20081010
  Serious: No
  Sender: FDA-Public Use
  Company Number: US200801004280

PATIENT
  Age: 48 Year
  Sex: Female

DRUGS (3)
  1. BYETTA [Suspect]
     Indication: TYPE 2 DIABETES MELLITUS
     Dosage: 5 UG, 2/D, SUBCUTANEOUS ; 10 UG, 2/D, SUBCUTANEOUS
     Route: 058
     Dates: start: 20060101, end: 20060101
  2. BYETTA [Suspect]
     Indication: TYPE 2 DIABETES MELLITUS
     Dosage: 5 UG, 2/D, SUBCUTANEOUS ; 10 UG, 2/D, SUBCUTANEOUS
     Route: 058
     Dates: start: 20060101
  3. BENAZEPRIL HCL [Concomitant]

REACTIONS (8)
  - CONSTIPATION [None]
  - DIARRHOEA [None]
  - EYE SWELLING [None]
  - NAUSEA [None]
  - OEDEMA PERIPHERAL [None]
  - VISION BLURRED [None]
  - VISUAL ACUITY REDUCED [None]
  - VOMITING [None]
